FAERS Safety Report 6316861-5 (Version None)
Quarter: 2009Q3

REPORT INFORMATION
  Report Type: 
  Country: None (occurrence: None)
  Receive Date: 20090820
  Receipt Date: 20090811
  Transmission Date: 20100115
  Serious: Yes (Death, Other)
  Sender: FDA-Public Use
  Company Number: BR-ROCHE-650317

PATIENT
  Age: 47 Year
  Sex: Female

DRUGS (1)
  1. TAMIFLU [Suspect]
     Indication: INFLUENZA
     Route: 065
     Dates: start: 20090801, end: 20090801

REACTIONS (2)
  - CARDIAC ARREST [None]
  - RESPIRATORY FAILURE [None]
